FAERS Safety Report 6739979-1 (Version None)
Quarter: 2010Q2

REPORT INFORMATION
  Report Type: 
  Country: None (occurrence: None)
  Receive Date: 20100525
  Receipt Date: 20100517
  Transmission Date: 20101027
  Serious: Yes (Hospitalization)
  Sender: FDA-Public Use
  Company Number: US-ELI_LILLY_AND_COMPANY-US201002004970

PATIENT
  Sex: Female
  Weight: 80.272 kg

DRUGS (8)
  1. GEMCITABINE HCL [Suspect]
     Indication: BREAST CANCER METASTATIC
     Dosage: 2500 MG/M2, OTHER
     Route: 042
     Dates: start: 20090921, end: 20100208
  2. BEVACIZUMAB [Suspect]
     Indication: BREAST CANCER METASTATIC
     Dosage: 10 MG/KG, OTHER
     Route: 042
     Dates: start: 20090921, end: 20100208
  3. LASIX [Concomitant]
     Indication: FLUID RETENTION
  4. DECADRON [Concomitant]
     Indication: PROPHYLAXIS
  5. TOPROL-XL [Concomitant]
     Indication: HYPERTENSION
  6. LIPITOR [Concomitant]
     Indication: HYPERLIPIDAEMIA
  7. LISINOPRIL [Concomitant]
     Indication: HYPERTENSION
  8. ASPIRIN [Concomitant]
     Indication: CORONARY ARTERY DISEASE

REACTIONS (6)
  - DYSPNOEA [None]
  - FLUID RETENTION [None]
  - HYPOVOLAEMIA [None]
  - RENAL FAILURE ACUTE [None]
  - REVERSIBLE POSTERIOR LEUKOENCEPHALOPATHY SYNDROME [None]
  - SYNCOPE [None]
